FAERS Safety Report 4854432-8 (Version None)
Quarter: 2005Q4

REPORT INFORMATION
  Report Type: 
  Country: None (occurrence: None)
  Receive Date: 20051215
  Receipt Date: 20050615
  Transmission Date: 20060501
  Serious: Yes (Death, Life-Threatening)
  Sender: FDA-Public Use
  Company Number: US-BRISTOL-MYERS SQUIBB COMPANY-13005061

PATIENT
  Age: 53 Year
  Sex: Male

DRUGS (2)
  1. CISPLATIN [Suspect]
     Indication: GASTRIC CANCER
     Route: 041
     Dates: start: 20050518, end: 20050518
  2. FLUOROURACIL [Suspect]
     Indication: GASTRIC CANCER
     Route: 041
     Dates: start: 20050518, end: 20050523

REACTIONS (2)
  - GASTROINTESTINAL PERFORATION [None]
  - MALIGNANT NEOPLASM PROGRESSION [None]
